FAERS Safety Report 12854128 (Version 1)
Quarter: 2016Q4

REPORT INFORMATION
  Report Type: Spontaneous
  Country: US (occurrence: US)
  Receive Date: 20161017
  Receipt Date: 20161017
  Transmission Date: 20170207
  Serious: Yes (Hospitalization)
  Sender: FDA-Public Use
  Company Number: US-TAIHO ONCOLOGY INC-EU-2016-02654

PATIENT
  Age: 69 Year
  Sex: Female

DRUGS (6)
  1. AMLODIPINE [Concomitant]
     Active Substance: AMLODIPINE BESYLATE
     Dosage: NI
  2. HYDROXYZINE [Concomitant]
     Active Substance: HYDROXYZINE\HYDROXYZINE HYDROCHLORIDE
     Dosage: NI
  3. LONSURF [Suspect]
     Active Substance: TIPIRACIL HYDROCHLORIDE\TRIFLURIDINE
     Indication: COLON CANCER
     Route: 048
     Dates: start: 20160909, end: 201609
  4. COLECALCIFEROL [Concomitant]
     Active Substance: CHOLECALCIFEROL
     Dosage: NI
  5. DULOXETINE. [Concomitant]
     Active Substance: DULOXETINE
     Dosage: NI
  6. GABAPENTIN. [Concomitant]
     Active Substance: GABAPENTIN
     Dosage: NI

REACTIONS (3)
  - Vomiting [Unknown]
  - Nausea [Unknown]
  - Hospitalisation [Unknown]

NARRATIVE: CASE EVENT DATE: 201609
